FAERS Safety Report 6693916-7 (Version None)
Quarter: 2010Q2

REPORT INFORMATION
  Report Type: 
  Country: None (occurrence: None)
  Receive Date: 20100421
  Receipt Date: 20100406
  Transmission Date: 20101027
  Serious: No
  Sender: FDA-Public Use
  Company Number: SPI201000103

PATIENT
  Age: 47 Year
  Sex: Female
  Weight: 48.1 kg

DRUGS (3)
  1. AMITIZA [Suspect]
     Indication: CONSTIPATION
     Dosage: 24 MCG, SINGLE, ORAL
     Route: 048
     Dates: start: 20100331, end: 20100331
  2. AMITIZA [Suspect]
     Indication: GASTROINTESTINAL DISORDER
     Dosage: 24 MCG, SINGLE, ORAL
     Route: 048
     Dates: start: 20100331, end: 20100331
  3. ORAL CONTRACEPTIVE NOS (ORAL CONTRACEPTIVE NOS) [Concomitant]

REACTIONS (4)
  - CHEST DISCOMFORT [None]
  - CHEST PAIN [None]
  - MIGRAINE [None]
  - PALPITATIONS [None]
